FAERS Safety Report 11158326 (Version 1)
Quarter: 2015Q2

REPORT INFORMATION
  Report Type: Spontaneous
  Country: IT (occurrence: IT)
  Receive Date: 20150603
  Receipt Date: 20150603
  Transmission Date: 20150821
  Serious: Yes (Other)
  Sender: FDA-Public Use
  Company Number: IT-ABBVIE-15P-083-1402622-00

PATIENT
  Age: 41 Year
  Sex: Male

DRUGS (2)
  1. KLACID 250 MG COATED TABLET [Suspect]
     Active Substance: CLARITHROMYCIN
     Indication: TOOTH ABSCESS
     Route: 048
     Dates: start: 20150508, end: 20150510
  2. AMOXICILLIN. [Concomitant]
     Active Substance: AMOXICILLIN
     Indication: TOOTH ABSCESS
     Route: 048

REACTIONS (2)
  - Face oedema [Recovering/Resolving]
  - Lip oedema [Recovering/Resolving]

NARRATIVE: CASE EVENT DATE: 20150508
